FAERS Safety Report 5533285-9 (Version None)
Quarter: 2007Q4

REPORT INFORMATION
  Report Type: 
  Country: None (occurrence: None)
  Receive Date: 20071204
  Receipt Date: 20071120
  Transmission Date: 20080405
  Serious: Yes (Life-Threatening, Hospitalization)
  Sender: FDA-Public Use
  Company Number: ZA-ROCHE-532847

PATIENT
  Age: 66 Year
  Sex: Female
  Weight: 80 kg

DRUGS (1)
  1. LARIAM [Suspect]
     Indication: MALARIA PROPHYLAXIS
     Route: 048
     Dates: end: 20071110

REACTIONS (4)
  - ADVERSE DRUG REACTION [None]
  - INTERSTITIAL LUNG DISEASE [None]
  - OVERDOSE [None]
  - RESPIRATORY FAILURE [None]
